FAERS Safety Report 5659520-4 (Version None)
Quarter: 2008Q1

REPORT INFORMATION
  Report Type: 
  Country: None (occurrence: None)
  Receive Date: 20080311
  Receipt Date: 20080305
  Transmission Date: 20080703
  Serious: Yes (Death, Other)
  Sender: FDA-Public Use
  Company Number: PHNU2007DE01691

PATIENT
  Age: 58 Year
  Sex: Male
  Weight: 82 kg

DRUGS (39)
  1. TEGRETAL RETARD [Suspect]
     Indication: GRAND MAL CONVULSION
     Dosage: 1 DF, QD
     Route: 048
     Dates: start: 20060304, end: 20060304
  2. TEGRETAL RETARD [Suspect]
     Dosage: 1 DF, BID
     Route: 048
     Dates: start: 20060305, end: 20060306
  3. TEGRETAL RETARD [Suspect]
     Dosage: 1 DF, TID
     Route: 048
     Dates: start: 20060307, end: 20060409
  4. FENISTIL [Concomitant]
     Dosage: 1 DF, UNK
     Route: 042
     Dates: start: 20060407, end: 20060407
  5. FENISTIL-RETARD [Concomitant]
     Dosage: 1 DF, QD
     Route: 065
     Dates: start: 20060408
  6. FENISTIL-RETARD [Concomitant]
     Dosage: UNK, PRN
     Route: 065
     Dates: start: 20060416
  7. RANITIDINE [Concomitant]
     Dosage: 1 DF, UNK
     Route: 042
     Dates: start: 20060407
  8. DIPIDOLOR [Concomitant]
     Dosage: 1 DF, UNK
     Route: 065
     Dates: start: 20060407
  9. LASIX [Concomitant]
     Route: 042
  10. IMMUNE GLOBULIN INTRAVENOUS (HUMAN) [Concomitant]
     Route: 042
  11. SODIUM CHLORIDE [Concomitant]
     Dosage: 1 DF, 6QD
  12. CLEXANE [Concomitant]
     Dosage: 1 DF, QD
     Route: 058
  13. NEURONTIN [Concomitant]
     Dosage: 1 DF, TID
     Route: 048
  14. SACCHAROMYCES BOULARDII [Concomitant]
     Dosage: 1 DF, BID
     Route: 048
  15. CANDIO-HERMAL [Concomitant]
     Dosage: 1 DF, QID
     Route: 048
  16. REMERGIL [Concomitant]
     Dosage: 1 DF, QD
     Route: 048
  17. TAVOR [Concomitant]
     Dosage: 1 DF, TID
     Route: 048
  18. ZOVIRAX [Concomitant]
     Dosage: 1 DF, QD
  19. DEXPANTHENOL [Concomitant]
     Dosage: 1 DF, QD
  20. POLYSPECTRAN TROPFEN [Concomitant]
     Dosage: 1 DF, BID
  21. ROCEPHIN [Concomitant]
     Route: 065
     Dates: start: 20060407
  22. CALCIPARINE [Concomitant]
     Dosage: 7500 IU, QD
     Route: 058
     Dates: start: 20060406, end: 20060406
  23. CALCIPARINE [Concomitant]
     Dosage: 7500 IU, BID
     Route: 058
     Dates: start: 20060407, end: 20060407
  24. CALCIPARINE [Concomitant]
     Dosage: 1 DF, UNK
     Route: 065
     Dates: start: 20060409
  25. REKAWAN [Concomitant]
     Dosage: 1 DF, QD
     Route: 065
     Dates: start: 20060406, end: 20060406
  26. REKAWAN [Concomitant]
     Dosage: 1 DF, TID
     Route: 065
     Dates: start: 20060407, end: 20060407
  27. REKAWAN [Concomitant]
     Dosage: 1 DF, BID
     Route: 065
     Dates: start: 20060409, end: 20060409
  28. ACYCLOVIR [Concomitant]
     Dosage: 1 DF, QD
     Route: 042
  29. MERONEM [Concomitant]
     Dosage: 1 DF, TID
     Route: 042
  30. COTRIM [Concomitant]
     Dosage: 1 DF, QW3
     Route: 042
  31. VOLTAREN RESINAT ^NOVARTIS^ [Concomitant]
     Dosage: 1 DF, TID
     Route: 048
     Dates: start: 20030305, end: 20060308
  32. PANTOZOL [Concomitant]
     Dosage: 1 DF, QD
     Route: 065
     Dates: start: 20060305, end: 20060308
  33. KONAKION [Concomitant]
     Dosage: 20 DRP, UNK
     Route: 065
     Dates: start: 20060401
  34. DECORTIN [Concomitant]
     Indication: AUTOIMMUNE HEPATITIS
     Dosage: 250 MG, UNK
     Route: 042
     Dates: start: 20060407
  35. DECORTIN [Concomitant]
     Dosage: 1 DF, QD
     Route: 065
     Dates: start: 20060401
  36. URSO FALK [Concomitant]
     Dosage: 3 DF/DAY
     Route: 065
     Dates: start: 20060401
  37. PROTON PUMP INHIBITORS [Concomitant]
     Indication: GASTRITIS
     Dosage: ^HIGH DOSE^
     Dates: start: 20060401
  38. AMPHO-MORONAL [Concomitant]
     Dosage: 1 DF, QID
  39. FRISIUM [Concomitant]
     Indication: EPILEPSY

REACTIONS (48)
  - ADRENAL ADENOMA [None]
  - BIOPSY LIVER ABNORMAL [None]
  - BLOOD BILIRUBIN INCREASED [None]
  - BLOOD CHOLINESTERASE DECREASED [None]
  - BLOOD CREATININE INCREASED [None]
  - BLOOD UREA INCREASED [None]
  - BRONCHIAL HAEMORRHAGE [None]
  - CHOLANGITIS [None]
  - CHOLECYSTITIS [None]
  - CHOLELITHIASIS [None]
  - CHOLESTASIS [None]
  - CRITICAL ILLNESS POLYNEUROPATHY [None]
  - DYSPNOEA [None]
  - EMPHYSEMA [None]
  - ERYTHEMA [None]
  - GASTRITIS EROSIVE [None]
  - HEPATIC ENZYME INCREASED [None]
  - HEPATIC FAILURE [None]
  - HEPATITIS [None]
  - HEPATOMEGALY [None]
  - HYPERSENSITIVITY [None]
  - HYPOGAMMAGLOBULINAEMIA [None]
  - IMMUNODEFICIENCY COMMON VARIABLE [None]
  - INTERNATIONAL NORMALISED RATIO INCREASED [None]
  - JAUNDICE [None]
  - KERATITIS HERPETIC [None]
  - LIPASE INCREASED [None]
  - LUNG INFILTRATION [None]
  - MUCOSAL ULCERATION [None]
  - MULTI-ORGAN FAILURE [None]
  - NEPHRITIS INTERSTITIAL [None]
  - OESOPHAGEAL ULCER [None]
  - ORAL CANDIDIASIS [None]
  - ORAL HERPES [None]
  - PANCREATITIS [None]
  - PERICARDIAL EFFUSION [None]
  - PLEURAL EFFUSION [None]
  - PNEUMONIA [None]
  - PROTEIN TOTAL DECREASED [None]
  - PROTHROMBIN TIME PROLONGED [None]
  - PULMONARY CONGESTION [None]
  - RED BLOOD CELL COUNT DECREASED [None]
  - REFLUX OESOPHAGITIS [None]
  - RENAL DISORDER [None]
  - RENAL FAILURE [None]
  - SKIN SWELLING [None]
  - TRACHEOBRONCHITIS [None]
  - VANISHING BILE DUCT SYNDROME [None]
